FAERS Safety Report 8171344-5 (Version None)
Quarter: 2012Q1

REPORT INFORMATION
  Report Type: 
  Country: None (occurrence: None)
  Receive Date: 20120104
  Receipt Date: 20111205
  Transmission Date: 20120608
  Serious: No
  Sender: FDA-Public Use
  Company Number: 2011HGS-002915

PATIENT
  Sex: Female
  Weight: 141.0687 kg

DRUGS (7)
  1. PLAQUENIL (HYDROXYCHLOROQUINE SULFATE)(HYDROXYCHLOROQUINE SULFATE) [Concomitant]
  2. WELLBUTRIN(BUPROPION HYDROCHLORIDE)(BUPROPION HYDROCHLORIDE) [Concomitant]
  3. XANAX [Concomitant]
  4. VITAMIN D(ERGOCALCIFEROL)(ERGOCALCIFEROL) [Concomitant]
  5. VITAMIN E(TOCOPHEROL)(TOCOPHEROL) [Concomitant]
  6. PREDNISONE [Concomitant]
  7. BENLYSTA [Suspect]
     Indication: SYSTEMIC LUPUS ERYTHEMATOSUS
     Dosage: 1 IN 28 D, INTRAVENOUS DRIP
     Route: 041
     Dates: start: 20110901

REACTIONS (6)
  - DISTURBANCE IN ATTENTION [None]
  - MUSCLE DISORDER [None]
  - VISUAL IMPAIRMENT [None]
  - SYSTEMIC LUPUS ERYTHEMATOSUS [None]
  - UPPER RESPIRATORY TRACT INFECTION [None]
  - ARTHROPATHY [None]
